FAERS Safety Report 20113890 (Version 2)
Quarter: 2021Q4

REPORT INFORMATION
  Report Type: Other
  Country: US (occurrence: None)
  Receive Date: 20211125
  Receipt Date: 20211207
  Transmission Date: 20220303
  Serious: No
  Sender: FDA-Public Use
  Company Number: US-ROCHE-2965452

PATIENT
  Sex: Female
  Weight: 102.15 kg

DRUGS (8)
  1. OCREVUS [Suspect]
     Active Substance: OCRELIZUMAB
     Indication: Multiple sclerosis
     Dosage: 300 MG AT DAY 1 AND DAY 15
     Route: 042
     Dates: start: 20211108
  2. OCREVUS [Suspect]
     Active Substance: OCRELIZUMAB
     Indication: Relapsing multiple sclerosis
  3. OCREVUS [Suspect]
     Active Substance: OCRELIZUMAB
     Indication: Relapsing-remitting multiple sclerosis
  4. DULOXETINE [Concomitant]
     Active Substance: DULOXETINE
     Indication: Neuralgia
     Dosage: YES
     Route: 048
     Dates: start: 20191031
  5. LEXAPRO [Concomitant]
     Active Substance: ESCITALOPRAM OXALATE
     Indication: Depression
     Dosage: YES
     Route: 048
     Dates: start: 20211006
  6. LEXAPRO [Concomitant]
     Active Substance: ESCITALOPRAM OXALATE
     Indication: Anxiety
  7. LYSINE [Concomitant]
     Active Substance: LYSINE
     Indication: Oral herpes
     Dosage: TAKING FOR A LONG TIME ;ONGOING: YES
     Route: 048
  8. VITAMIN D3 [Concomitant]
     Active Substance: CHOLECALCIFEROL
     Dosage: TAKING FOR A LONG TIME ;ONGOING: YES
     Route: 048

REACTIONS (1)
  - COVID-19 [Not Recovered/Not Resolved]
